FAERS Safety Report 20977957 (Version 1)
Quarter: 2022Q2

REPORT INFORMATION
  Report Type: Spontaneous
  Country: IR (occurrence: IR)
  Receive Date: 20220618
  Receipt Date: 20220618
  Transmission Date: 20220721
  Serious: Yes (Other)
  Sender: FDA-Public Use
  Company Number: IR-SA-2022SA226208

PATIENT
  Sex: Female

DRUGS (4)
  1. LEFLUNOMIDE [Suspect]
     Active Substance: LEFLUNOMIDE
     Indication: Palindromic rheumatism
     Dosage: 20 MG, QD
  2. METHOTREXATE [Suspect]
     Active Substance: METHOTREXATE
     Indication: Palindromic rheumatism
     Dosage: 10 MG/WEEK
  3. PREDNISOLONE [Suspect]
     Active Substance: PREDNISOLONE
     Indication: Palindromic rheumatism
     Dosage: 5-7.5 MG/D
  4. HYDROXYCHLOROQUINE [Suspect]
     Active Substance: HYDROXYCHLOROQUINE
     Indication: Palindromic rheumatism
     Dosage: 5 MG/KG

REACTIONS (3)
  - Off label use [Unknown]
  - Drug ineffective for unapproved indication [Unknown]
  - Rheumatoid arthritis [Unknown]
